FAERS Safety Report 25778792 (Version 1)
Quarter: 2025Q3

REPORT INFORMATION
  Report Type: Spontaneous
  Country: US (occurrence: US)
  Receive Date: 20250909
  Receipt Date: 20250909
  Transmission Date: 20251021
  Serious: No
  Sender: NEUROCRINE BIOSCIENCES
  Company Number: US-NEUROCRINE BIOSCIENCES INC.-2025NBI11281

PATIENT
  Age: 59 Year
  Sex: Female

DRUGS (1)
  1. INGREZZA [Suspect]
     Active Substance: VALBENAZINE DITOSYLATE
     Indication: Movement disorder
     Route: 065

REACTIONS (4)
  - Drug ineffective for unapproved indication [Unknown]
  - Salivary hypersecretion [Unknown]
  - Drooling [Unknown]
  - Off label use [Unknown]
